FAERS Safety Report 8482208-1 (Version None)
Quarter: 2012Q3

REPORT INFORMATION
  Report Type: 
  Country: None (occurrence: None)
  Receive Date: 20120702
  Receipt Date: 20120621
  Transmission Date: 20120928
  Serious: Yes (Other)
  Sender: FDA-Public Use
  Company Number: US-ASTRAZENECA-2009SE25274

PATIENT
  Sex: Male

DRUGS (5)
  1. LAMICTAL [Concomitant]
  2. EFFEXOR XR [Concomitant]
     Route: 048
  3. SEROQUEL [Suspect]
     Route: 048
  4. KALETRA [Concomitant]
  5. TRUVADA [Concomitant]

REACTIONS (4)
  - DRUG HYPERSENSITIVITY [None]
  - SUICIDAL IDEATION [None]
  - LETHARGY [None]
  - DRUG DOSE OMISSION [None]
